FAERS Safety Report 4269088-5 (Version None)
Quarter: 2004Q1

REPORT INFORMATION
  Report Type: 
  Country: None (occurrence: None)
  Receive Date: 20040108
  Receipt Date: 20040102
  Transmission Date: 20041129
  Serious: Yes (Disabling, Other)
  Sender: FDA-Public Use
  Company Number: 200410000BNE

PATIENT
  Age: 42 Year
  Sex: Female

DRUGS (11)
  1. ADALAT [Suspect]
  2. ECHINACEA (ECHINACEA EXTRACT) [Suspect]
  3. BENDROFLUAZIDE [Suspect]
  4. BECLOMETHASONE (BECLOMETASONE) [Suspect]
  5. CODEINE [Suspect]
  6. DICLOFENAC SODIUM [Suspect]
  7. DOTHIEPIN HYDROCHLORIDE [Suspect]
  8. DOXAPRAM [Suspect]
  9. IRON SULPHATE (IRON SULFATE) [Suspect]
  10. SALBUTAMOL [Suspect]
  11. TRANEXAMIC ACID [Suspect]

REACTIONS (2)
  - COAGULOPATHY [None]
  - DRUG INTERACTION [None]
